FAERS Safety Report 25528516 (Version 1)
Quarter: 2025Q3

REPORT INFORMATION
  Report Type: Spontaneous
  Country: EU (occurrence: EU)
  Receive Date: 20250708
  Receipt Date: 20250708
  Transmission Date: 20251020
  Serious: Yes (Other)
  Sender: MYLAN
  Company Number: EU-MYLANLABS-2025M1055316

PATIENT
  Age: 50 Year
  Sex: Male

DRUGS (20)
  1. PREDNISONE [Suspect]
     Active Substance: PREDNISONE
     Indication: Acute febrile neutrophilic dermatosis
     Dosage: 5 MILLIGRAM, QD
  2. PREDNISONE [Suspect]
     Active Substance: PREDNISONE
     Dosage: 5 MILLIGRAM, QD
     Route: 065
  3. PREDNISONE [Suspect]
     Active Substance: PREDNISONE
     Dosage: 5 MILLIGRAM, QD
     Route: 065
  4. PREDNISONE [Suspect]
     Active Substance: PREDNISONE
     Dosage: 5 MILLIGRAM, QD
  5. COLCHICINE [Concomitant]
     Active Substance: COLCHICINE
     Indication: Acute febrile neutrophilic dermatosis
  6. COLCHICINE [Concomitant]
     Active Substance: COLCHICINE
     Route: 065
  7. COLCHICINE [Concomitant]
     Active Substance: COLCHICINE
     Route: 065
  8. COLCHICINE [Concomitant]
     Active Substance: COLCHICINE
  9. DAPSONE [Concomitant]
     Active Substance: DAPSONE
     Indication: Acute febrile neutrophilic dermatosis
  10. DAPSONE [Concomitant]
     Active Substance: DAPSONE
     Route: 065
  11. DAPSONE [Concomitant]
     Active Substance: DAPSONE
     Route: 065
  12. DAPSONE [Concomitant]
     Active Substance: DAPSONE
  13. ADALIMUMAB [Concomitant]
     Active Substance: ADALIMUMAB
     Indication: Acute febrile neutrophilic dermatosis
     Dosage: 40 MILLIGRAM, BIWEEKLY
     Dates: start: 20230705
  14. ADALIMUMAB [Concomitant]
     Active Substance: ADALIMUMAB
     Dosage: 40 MILLIGRAM, BIWEEKLY
     Route: 065
     Dates: start: 20230705
  15. ADALIMUMAB [Concomitant]
     Active Substance: ADALIMUMAB
     Dosage: 40 MILLIGRAM, BIWEEKLY
     Route: 065
     Dates: start: 20230705
  16. ADALIMUMAB [Concomitant]
     Active Substance: ADALIMUMAB
     Dosage: 40 MILLIGRAM, BIWEEKLY
     Dates: start: 20230705
  17. METHOTREXATE [Concomitant]
     Active Substance: METHOTREXATE
     Indication: Acute febrile neutrophilic dermatosis
     Dosage: 15 MILLIGRAM, QW
     Dates: start: 202304
  18. METHOTREXATE [Concomitant]
     Active Substance: METHOTREXATE
     Dosage: 15 MILLIGRAM, QW
     Route: 065
     Dates: start: 202304
  19. METHOTREXATE [Concomitant]
     Active Substance: METHOTREXATE
     Dosage: 15 MILLIGRAM, QW
     Route: 065
     Dates: start: 202304
  20. METHOTREXATE [Concomitant]
     Active Substance: METHOTREXATE
     Dosage: 15 MILLIGRAM, QW
     Dates: start: 202304

REACTIONS (1)
  - Central serous chorioretinopathy [Unknown]
